FAERS Safety Report 19575386 (Version 1)
Quarter: 2021Q3

REPORT INFORMATION
  Report Type: Spontaneous
  Country: US (occurrence: US)
  Receive Date: 20210716
  Receipt Date: 20210716
  Transmission Date: 20211014
  Serious: No
  Sender: FDA-Public Use
  Company Number: None

PATIENT
  Age: 51 Year
  Sex: Female
  Weight: 77.85 kg

DRUGS (8)
  1. D VITAMIN [Concomitant]
     Active Substance: VITAMIN D NOS
  2. MACA ROOT [Concomitant]
  3. CHLOROPHYLL [Concomitant]
  4. NEUTROGENA SUNSCREEN NOS [Suspect]
     Active Substance: AVOBENZONE\HOMOSALATE\OCTISALATE\OCTOCRYLENE OR AVOBENZONE\HOMOSALATE\OCTISALATE\OCTOCRYLENE\OXYBENZONE
     Indication: PROPHYLAXIS AGAINST SOLAR RADIATION
     Dosage: ? OTHER STRENGTH:SPRAYED ARMS;QUANTITY:1 SPRAY(S);?
     Route: 061
     Dates: start: 20210629, end: 20210629
  5. GARLIC. [Concomitant]
     Active Substance: GARLIC
  6. OMEGA OILS [Concomitant]
  7. MULTI?VITAMIN [Concomitant]
     Active Substance: .ALPHA.-TOCOPHEROL ACETATE, DL-\ASCORBIC ACID\CYANOCOBALAMIN\FLUORIDE ION\FOLIC ACID\NIACIN\PYRIDOXINE\RIBOFLAVIN\THIAMINE\VITAMIN A\VITAMIN D
  8. B VITAMINS [Concomitant]
     Active Substance: CYANOCOBALAMIN\DEXPANTHENOL\NIACINAMIDE\PYRIDOXINE HYDROCHLORIDE\RIBOFLAVIN 5^-PHOSPHATE SODIUM\THIAMINE HYDROCHLORIDE\VITAMIN B COMPLEX

REACTIONS (2)
  - Application site vesicles [None]
  - Urticaria [None]

NARRATIVE: CASE EVENT DATE: 20210629
